FAERS Safety Report 10320831 (Version 2)
Quarter: 2015Q1

REPORT INFORMATION
  Report Type: Other
  Country: US (occurrence: US)
  Receive Date: 20140719
  Receipt Date: 20150225
  Transmission Date: 20150720
  Serious: Yes (Death, Hospitalization, Other)
  Sender: FDA-Public Use
  Company Number: US-GSKPPD-2014GSK024967

PATIENT
  Age: 61 Year
  Sex: Male

DRUGS (5)
  1. PLAVIX [Concomitant]
     Active Substance: CLOPIDOGREL BISULFATE
     Route: 048
  2. LIPITOR [Concomitant]
     Active Substance: ATORVASTATIN CALCIUM
     Route: 048
  3. AVANDIA [Suspect]
     Active Substance: ROSIGLITAZONE MALEATE
     Indication: DIABETES MELLITUS
     Dosage: DATES OF AVANDIA USE COULD NOT BE CONFIRMED IN RECORDS REVIEWED.
     Route: 048
  4. ASPIRIN. [Concomitant]
     Active Substance: ASPIRIN
     Route: 048
  5. TARKA [Concomitant]
     Active Substance: TRANDOLAPRIL\VERAPAMIL HYDROCHLORIDE
     Dosage: 4MG/480MG
     Route: 048

REACTIONS (3)
  - Transient ischaemic attack [Recovered/Resolved]
  - Cardiac failure congestive [Unknown]
  - Pulmonary oedema [Fatal]

NARRATIVE: CASE EVENT DATE: 20010427
